FAERS Safety Report 8573010-0 (Version None)
Quarter: 2012Q3

REPORT INFORMATION
  Report Type: 
  Country: None (occurrence: None)
  Receive Date: 20120806
  Receipt Date: 20120801
  Transmission Date: 20120928
  Serious: Yes (Hospitalization)
  Sender: FDA-Public Use
  Company Number: IT-PFIZER INC-2012187711

PATIENT
  Age: 73 Year
  Sex: Female

DRUGS (13)
  1. ALLOPURINOL [Suspect]
     Dosage: 300 MG, 1X/DAY
     Route: 048
     Dates: start: 20120704, end: 20120715
  2. ROCALTROL [Concomitant]
     Indication: SYSTEMIC SCLEROSIS
     Dosage: 0.5 UG, ALTERNATE DAY
     Route: 048
     Dates: start: 20120709, end: 20120713
  3. LASIX [Concomitant]
     Dosage: 25 MG, UNK
     Route: 048
     Dates: start: 20120704, end: 20120718
  4. METHYLPREDNISOLONE [Concomitant]
     Dosage: 20 MG, UNK
     Route: 042
  5. AROMASIN [Suspect]
     Indication: BREAST CANCER
     Dosage: 25 MG, 1X/DAY
     Route: 048
     Dates: start: 20120630, end: 20120718
  6. AMIODARONE HYDROCHLORIDE [Concomitant]
     Indication: ATRIAL FIBRILLATION
     Dosage: 200 MG, UNK
     Route: 048
  7. IRBESARTAN [Concomitant]
     Indication: HYPERTENSION
     Dosage: 150 MG, 1X/DAY
     Route: 048
     Dates: start: 20120714, end: 20120717
  8. CALCIUM CARBONATE [Concomitant]
     Dosage: 1 G, 1X/DAY
     Route: 048
  9. OMEPRAZOLE [Suspect]
     Dosage: 40 MG, 1X/DAY
     Route: 048
     Dates: start: 20120704, end: 20120718
  10. BECOZYM [Concomitant]
     Dosage: 1 DF, UNK
     Route: 048
     Dates: start: 20120704, end: 20120718
  11. CIPROFLOXACIN HCL [Suspect]
     Indication: PYREXIA
     Dosage: 500 MG, 1X/DAY
     Route: 048
     Dates: start: 20120714, end: 20120716
  12. ARANESP [Concomitant]
     Dosage: 40 UG, WEEKLY
     Route: 058
  13. ENALAPRIL MALEATE [Concomitant]
     Indication: HYPERTENSION
     Dosage: UNK
     Dates: start: 20120704, end: 20120710

REACTIONS (1)
  - AGRANULOCYTOSIS [None]
